FAERS Safety Report 9656462 (Version 2)
Quarter: 2014Q1

REPORT INFORMATION
  Report Type: Spontaneous
  Country: DE (occurrence: None)
  Receive Date: 20131028
  Receipt Date: 20140114
  Transmission Date: 20141002
  Serious: Yes (Other)
  Sender: FDA-Public Use
  Company Number: 1310-1331

PATIENT
  Age: 73 Year
  Sex: Male

DRUGS (1)
  1. EYLEA [Suspect]
     Indication: AGE-RELATED MACULAR DEGENERATION
     Dosage: 3 INJECTIONS, INTRAOCULAR
     Route: 031
     Dates: start: 20130806

REACTIONS (4)
  - Eye swelling [None]
  - Ocular hyperaemia [None]
  - Eye pain [None]
  - Visual impairment [None]
